FAERS Safety Report 6042258-1 (Version None)
Quarter: 2009Q1

REPORT INFORMATION
  Report Type: 
  Country: None (occurrence: None)
  Receive Date: 20090116
  Receipt Date: 20090108
  Transmission Date: 20090719
  Serious: Yes (Death)
  Sender: FDA-Public Use
  Company Number: US-GILEAD-2008-0018568

PATIENT
  Sex: Male
  Weight: 69.462 kg

DRUGS (5)
  1. LETAIRIS [Suspect]
     Indication: PULMONARY ARTERIAL HYPERTENSION
     Route: 048
     Dates: start: 20080422
  2. REVATIO [Concomitant]
     Route: 048
  3. PREDNISONE [Concomitant]
     Route: 048
  4. GEMFIBROZIL [Concomitant]
     Route: 048
  5. DOXYCYCLINE [Concomitant]
     Route: 048

REACTIONS (3)
  - INTERSTITIAL LUNG DISEASE [None]
  - PNEUMONIA [None]
  - PULMONARY HYPERTENSION [None]
